FAERS Safety Report 4299375-6 (Version None)
Quarter: 2004Q1

REPORT INFORMATION
  Report Type: 
  Country: None (occurrence: None)
  Receive Date: 20040219
  Receipt Date: 20031229
  Transmission Date: 20041129
  Serious: No
  Sender: FDA-Public Use
  Company Number: US-GLAXOSMITHKLINE-A0490770A

PATIENT
  Age: 66 Year
  Sex: Male

DRUGS (7)
  1. AVODART [Suspect]
     Indication: BENIGN PROSTATIC HYPERPLASIA
     Dosage: .05MG PER DAY
     Route: 048
     Dates: start: 20031031
  2. CARDURA [Concomitant]
  3. MAXZIDE [Concomitant]
  4. VASOTEC [Concomitant]
  5. PAXIL [Concomitant]
  6. CARDIZEM [Concomitant]
  7. PRAVACHOL [Concomitant]

REACTIONS (1)
  - HOT FLUSH [None]
